FAERS Safety Report 7035623-7 (Version None)
Quarter: 2010Q4

REPORT INFORMATION
  Report Type: 
  Country: None (occurrence: None)
  Receive Date: 20101008
  Receipt Date: 20100930
  Transmission Date: 20110411
  Serious: Yes (Hospitalization)
  Sender: FDA-Public Use
  Company Number: US-JNJFOC-20101000795

PATIENT
  Sex: Female
  Weight: 64.41 kg

DRUGS (5)
  1. DURAGESIC-100 [Suspect]
     Indication: PAIN
     Route: 062
  2. SANDOZ FENTANYL TRANSDERMAL SYSTEM [Suspect]
     Indication: PAIN
     Route: 062
  3. SANDOZ FENTANYL TRANSDERMAL SYSTEM [Suspect]
     Route: 062
  4. LORTAB [Concomitant]
     Indication: BREAKTHROUGH PAIN
     Route: 048
  5. ROBAXIN [Concomitant]
     Indication: MUSCLE SPASMS
     Route: 048

REACTIONS (8)
  - BACK DISORDER [None]
  - BLOOD CHOLESTEROL INCREASED [None]
  - DRUG ADMINISTERED AT INAPPROPRIATE SITE [None]
  - DRUG DOSE OMISSION [None]
  - INAPPROPRIATE SCHEDULE OF DRUG ADMINISTRATION [None]
  - PRODUCT ADHESION ISSUE [None]
  - RESTLESS LEGS SYNDROME [None]
  - WRONG TECHNIQUE IN DRUG USAGE PROCESS [None]
